APPROVED DRUG PRODUCT: AMANTADINE HYDROCHLORIDE
Active Ingredient: AMANTADINE HYDROCHLORIDE
Strength: 100MG
Dosage Form/Route: TABLET;ORAL
Application: A212407 | Product #001
Applicant: ADAPTIS PHARMA PRIVATE LTD
Approved: May 27, 2022 | RLD: No | RS: No | Type: DISCN